FAERS Safety Report 16722170 (Version 1)
Quarter: 2019Q3

REPORT INFORMATION
  Report Type: Spontaneous
  Country: US (occurrence: US)
  Receive Date: 20190820
  Receipt Date: 20190820
  Transmission Date: 20191005
  Serious: No
  Sender: FDA-Public Use
  Company Number: US-BRAINTREE LABORATORIES-190062

PATIENT
  Age: 72 Year
  Sex: Male
  Weight: 99.79 kg

DRUGS (1)
  1. GOLYTELY [Suspect]
     Active Substance: POLYETHYLENE GLYCOL 3350\POTASSIUM CHLORIDE\SODIUM BICARBONATE\SODIUM CHLORIDE\SODIUM SULFATE ANHYDROUS
     Indication: COLONOSCOPY
     Dosage: 2L
     Route: 048
     Dates: start: 20190204, end: 20190204

REACTIONS (2)
  - Abdominal pain upper [None]
  - Abdominal distension [None]

NARRATIVE: CASE EVENT DATE: 20190204
